FAERS Safety Report 4425922-7 (Version None)
Quarter: 2004Q3

REPORT INFORMATION
  Report Type: 
  Country: None (occurrence: None)
  Receive Date: 20040719
  Receipt Date: 20030827
  Transmission Date: 20050211
  Serious: Yes (Hospitalization)
  Sender: FDA-Public Use
  Company Number: 178335

PATIENT
  Age: 43 Year
  Sex: Female
  Weight: 77.1115 kg

DRUGS (5)
  1. AVONEX [Suspect]
     Indication: MULTIPLE SCLEROSIS
     Dosage: 30 MCG QW IM
     Route: 030
     Dates: start: 20010101
  2. ELAVIL [Concomitant]
  3. VICODIN [Concomitant]
  4. NAPROSYN [Concomitant]
  5. IV STEROIDS (NOS) [Concomitant]

REACTIONS (2)
  - HYPOTHYROIDISM [None]
  - MULTIPLE SCLEROSIS RELAPSE [None]
